FAERS Safety Report 16920194 (Version 1)
Quarter: 2019Q4

REPORT INFORMATION
  Report Type: Spontaneous
  Country: US (occurrence: US)
  Receive Date: 20191015
  Receipt Date: 20191015
  Transmission Date: 20200122
  Serious: Yes (Other)
  Sender: FDA-Public Use
  Company Number: None

PATIENT
  Age: 56 Year
  Sex: Female
  Weight: 70.65 kg

DRUGS (7)
  1. RECLAST [Suspect]
     Active Substance: ZOLEDRONIC ACID
     Indication: OSTEOPOROSIS
     Dates: start: 20190919
  2. WELLBUTRIN [Concomitant]
     Active Substance: BUPROPION HYDROCHLORIDE
  3. KLONIPIN [Concomitant]
     Active Substance: CLONAZEPAM
  4. VITAMIN D [Concomitant]
     Active Substance: VITAMIN D NOS
  5. CELEXA [Concomitant]
     Active Substance: CITALOPRAM HYDROBROMIDE
  6. MULTIVITAMIN [Concomitant]
     Active Substance: VITAMINS
  7. CALCIUM [Concomitant]
     Active Substance: CALCIUM

REACTIONS (5)
  - Nausea [None]
  - Hyperhidrosis [None]
  - Arthralgia [None]
  - Influenza like illness [None]
  - Headache [None]

NARRATIVE: CASE EVENT DATE: 20190919
